FAERS Safety Report 8603358-2 (Version None)
Quarter: 2012Q3

REPORT INFORMATION
  Report Type: 
  Country: None (occurrence: None)
  Receive Date: 20120817
  Receipt Date: 20120809
  Transmission Date: 20120928
  Serious: Yes (Hospitalization, Other)
  Sender: FDA-Public Use
  Company Number: US-ABBOTT-12P-163-0966791-00

PATIENT
  Sex: Female
  Weight: 109.87 kg

DRUGS (22)
  1. HUMIRA [Suspect]
     Indication: RHEUMATOID ARTHRITIS
     Dates: start: 20070101
  2. POTASSIUM [Concomitant]
     Indication: MINERAL SUPPLEMENTATION
  3. UNKNOWN INHALER [Concomitant]
     Indication: ASTHMA
  4. LASIX [Concomitant]
     Indication: HYPERTENSION
  5. SINGULAIR [Concomitant]
     Indication: HYPERSENSITIVITY
  6. LEXAPRO [Concomitant]
     Indication: DEPRESSION
  7. SPIRIVA [Concomitant]
     Indication: ASTHMA
  8. MULTI-VITAMIN [Concomitant]
     Indication: VITAMIN SUPPLEMENTATION
  9. VITAMIN E [Concomitant]
     Indication: VITAMIN SUPPLEMENTATION
  10. ELAVIL [Concomitant]
     Indication: INSOMNIA
  11. DESYREL [Concomitant]
     Indication: INSOMNIA
  12. XANAX [Concomitant]
     Indication: ANXIETY
  13. ZOCOR [Concomitant]
     Indication: BLOOD CHOLESTEROL INCREASED
  14. ZYLOTRIM [Concomitant]
     Indication: GOUT
  15. FLONASE [Concomitant]
     Indication: HYPERSENSITIVITY
  16. PREDNISONE TAB [Concomitant]
     Indication: RHEUMATOID ARTHRITIS
  17. METHOTREXATE [Suspect]
     Indication: RHEUMATOID ARTHRITIS
     Dates: start: 20070101, end: 20070101
  18. ASCORBIC ACID [Concomitant]
     Indication: VITAMIN SUPPLEMENTATION
  19. PLAQUENIL [Concomitant]
     Indication: RHEUMATOID ARTHRITIS
  20. PRILOSEC [Concomitant]
     Indication: ULCER
  21. PERCOCET [Concomitant]
     Indication: PAIN
  22. PLETAL [Concomitant]
     Indication: CARDIAC DISORDER

REACTIONS (10)
  - CHEST PAIN [None]
  - FATIGUE [None]
  - SINUSITIS [None]
  - BLISTER [None]
  - VISUAL IMPAIRMENT [None]
  - INTRACARDIAC THROMBUS [None]
  - EAR INFECTION [None]
  - PYREXIA [None]
  - MYOCARDIAL INFARCTION [None]
  - PAIN [None]
